FAERS Safety Report 25039645 (Version 1)
Quarter: 2025Q1

REPORT INFORMATION
  Report Type: Spontaneous
  Country: PL (occurrence: PL)
  Receive Date: 20250305
  Receipt Date: 20250305
  Transmission Date: 20250409
  Serious: Yes (Other)
  Sender: CELLTRION
  Company Number: None

PATIENT

DRUGS (2)
  1. RITUXIMAB [Suspect]
     Active Substance: RITUXIMAB
     Indication: Non-Hodgkin^s lymphoma
     Dates: start: 20191214, end: 20191214
  2. RITUXIMAB [Suspect]
     Active Substance: RITUXIMAB
     Dates: start: 20191214, end: 20191214

REACTIONS (8)
  - Chest discomfort [Unknown]
  - Feeling cold [Unknown]
  - Malaise [Unknown]
  - Asthenia [Unknown]
  - Blood pressure increased [Unknown]
  - Tachycardia [Unknown]
  - Seizure [Unknown]
  - Underdose [Unknown]

NARRATIVE: CASE EVENT DATE: 20191214
